FAERS Safety Report 23857240 (Version 2)
Quarter: 2024Q2

REPORT INFORMATION
  Report Type: Spontaneous
  Country: AT (occurrence: AT)
  Receive Date: 20240515
  Receipt Date: 20240614
  Transmission Date: 20240716
  Serious: Yes (Other)
  Sender: FDA-Public Use
  Company Number: AT-ORGANON-O2405AUT001160

PATIENT
  Age: 8 Year
  Sex: Female
  Weight: 26.4 kg

DRUGS (1)
  1. EBASTINE [Suspect]
     Active Substance: EBASTINE
     Indication: Allergic cough
     Dosage: 1X5M (IN THE EVENING)
     Route: 065
     Dates: start: 20240508, end: 20240510

REACTIONS (9)
  - Hallucination [Not Recovered/Not Resolved]
  - Dizziness [Unknown]
  - Somnolence [Unknown]
  - Aggression [Not Recovered/Not Resolved]
  - Restlessness [Unknown]
  - Agitation [Unknown]
  - Nervousness [Unknown]
  - Dyskinesia [Unknown]
  - Product use in unapproved indication [Unknown]

NARRATIVE: CASE EVENT DATE: 20240501
